FAERS Safety Report 24002270 (Version 1)
Quarter: 2024Q2

REPORT INFORMATION
  Report Type: Spontaneous
  Country: US (occurrence: US)
  Receive Date: 20240622
  Receipt Date: 20240622
  Transmission Date: 20240716
  Serious: No
  Sender: FDA-Public Use
  Company Number: US-AMGEN-USASP2024117998

PATIENT
  Sex: Female

DRUGS (3)
  1. IMDELLTRA [Suspect]
     Active Substance: TARLATAMAB-DLLE
     Indication: Small cell lung cancer
     Dosage: 1 MILLIGRAM (DAY 1), FIRST DOSE
     Route: 042
     Dates: start: 20240530, end: 20240530
  2. IMDELLTRA [Suspect]
     Active Substance: TARLATAMAB-DLLE
     Dosage: 10 MILLIGRAM (DAY 8), SECOND DOSE
     Route: 042
     Dates: start: 20240606, end: 20240606
  3. IMDELLTRA [Suspect]
     Active Substance: TARLATAMAB-DLLE
     Dosage: 10 MILLIGRAM (DAY 15), THIRD DOSE
     Route: 042
     Dates: start: 20240613

REACTIONS (2)
  - Anaemia [Unknown]
  - Fatigue [Unknown]
